FAERS Safety Report 6955622-0 (Version None)
Quarter: 2010Q3

REPORT INFORMATION
  Report Type: 
  Country: None (occurrence: None)
  Receive Date: 20100830
  Receipt Date: 20100819
  Transmission Date: 20110219
  Serious: Yes (Hospitalization)
  Sender: FDA-Public Use
  Company Number: FR-PFIZER INC-2010104347

PATIENT
  Age: 47 Year
  Sex: Female

DRUGS (4)
  1. ZITHROMAX [Suspect]
     Indication: PAROTID GLAND ENLARGEMENT
     Dosage: UNK
     Route: 048
     Dates: start: 20100713, end: 20100716
  2. NIFLURIL [Suspect]
     Indication: PAROTID GLAND ENLARGEMENT
     Dosage: UNK
     Route: 048
     Dates: start: 20100713, end: 20100716
  3. LAMALINE [Suspect]
     Indication: ANALGESIC THERAPY
     Dosage: UNK
     Route: 048
     Dates: start: 20100715, end: 20100716
  4. DOLIPRANE [Concomitant]
     Dosage: UNK
     Dates: start: 20100713

REACTIONS (1)
  - RASH MACULO-PAPULAR [None]
